FAERS Safety Report 4652146-0 (Version None)
Quarter: 2005Q2

REPORT INFORMATION
  Report Type: 
  Country: None (occurrence: None)
  Receive Date: 20050502
  Receipt Date: 20050419
  Transmission Date: 20051028
  Serious: Yes (Hospitalization, Other)
  Sender: FDA-Public Use
  Company Number: 2005037681

PATIENT
  Age: 79 Year
  Sex: Male
  Weight: 84.8226 kg

DRUGS (12)
  1. CELEBREX [Suspect]
     Indication: ARTHRITIS
  2. NAPROXEN [Suspect]
     Indication: ARTHRITIS
  3. CAPTOPRIL [Concomitant]
  4. GLYBURIDE [Concomitant]
  5. METOPROLOL TARTRATE [Concomitant]
  6. POTASSIUM CHLORIDE [Concomitant]
  7. DYAZIDE [Concomitant]
  8. DORZOLAMIDE HYDROCHLORIDE (DORZOLAMIDE HYDROCHLORIDE) [Concomitant]
  9. BRIMONIDINE TARTRATE [Concomitant]
  10. TIMOLOL MALEATE [Concomitant]
  11. ALLOPURINOL [Concomitant]
  12. TERAZOSIN (TERAZOSIN) [Concomitant]

REACTIONS (6)
  - ARTERIAL OCCLUSIVE DISEASE [None]
  - BLOOD CHOLESTEROL INCREASED [None]
  - DRUG EFFECT DECREASED [None]
  - ECONOMIC PROBLEM [None]
  - MYOCARDIAL INFARCTION [None]
  - PAIN [None]
